FAERS Safety Report 11484251 (Version 1)
Quarter: 2015Q3

REPORT INFORMATION
  Report Type: Spontaneous
  Country: US (occurrence: US)
  Receive Date: 20150903
  Receipt Date: 20150903
  Transmission Date: 20151125
  Serious: Yes (Other)
  Sender: FDA-Public Use
  Company Number: US-ELI_LILLY_AND_COMPANY-US201204009690

PATIENT
  Age: 40 Year
  Sex: Female

DRUGS (7)
  1. NEURONTIN [Concomitant]
     Active Substance: GABAPENTIN
  2. NUCYNTA [Concomitant]
     Active Substance: TAPENTADOL HYDROCHLORIDE
  3. CYMBALTA [Suspect]
     Active Substance: DULOXETINE HYDROCHLORIDE
     Indication: FIBROMYALGIA
     Dosage: UNK, UNKNOWN
  4. ELAVIL [Concomitant]
     Active Substance: AMITRIPTYLINE HYDROCHLORIDE
  5. CYMBALTA [Suspect]
     Active Substance: DULOXETINE HYDROCHLORIDE
     Dosage: 60MG, DAILY
  6. OXYCONTIN [Concomitant]
     Active Substance: OXYCODONE HYDROCHLORIDE
  7. CYMBALTA [Suspect]
     Active Substance: DULOXETINE HYDROCHLORIDE
     Dosage: 60 MG, BID
     Dates: start: 201203

REACTIONS (6)
  - Flushing [Recovered/Resolved]
  - Tachycardia [Recovered/Resolved]
  - Headache [Recovered/Resolved]
  - Serotonin syndrome [Recovered/Resolved]
  - Nausea [Recovered/Resolved]
  - Blood pressure increased [Recovered/Resolved]
